FAERS Safety Report 5233378-X (Version None)
Quarter: 2007Q1

REPORT INFORMATION
  Report Type: 
  Country: None (occurrence: None)
  Receive Date: 20070206
  Receipt Date: 20070129
  Transmission Date: 20070707
  Serious: Yes (Other)
  Sender: FDA-Public Use
  Company Number: 237108K06USA

PATIENT
  Age: 51 Year
  Sex: Female
  Weight: 99.7913 kg

DRUGS (10)
  1. REBIF [Suspect]
     Indication: MULTIPLE SCLEROSIS
     Dosage: 44 MCG, 3 IN 1 WEEKS, SUBCUTANEOUS
     Route: 058
     Dates: start: 20051020
  2. HYZAAR [Concomitant]
  3. PREVACID [Concomitant]
  4. SANCTURA [Concomitant]
  5. SYNTHROID [Concomitant]
  6. ZOLOFT [Concomitant]
  7. CALCITRIOL [Concomitant]
  8. CALCIUM REPLACEMENT (CALCIUM-SANDOZ /00009901/) [Concomitant]
  9. XALATAN [Concomitant]
  10. ALPHAGAN [Concomitant]

REACTIONS (1)
  - DIABETES MELLITUS [None]
